FAERS Safety Report 7146062 (Version 2)
Quarter: 2012Q4

REPORT INFORMATION
  Report Type: 
  Country: CA (occurrence: CA)
  Receive Date: 20091011
  Receipt Date: 20121106
  Transmission Date: 20130627
  Serious: Yes (Death, Other)
  Sender: FDA-Public Use
  Company Number: PHHY2009CA21064

PATIENT
  Sex: Female

DRUGS (2)
  1. SANDOSTATIN LAR [Suspect]
     Indication: HEPATIC NEOPLASM MALIGNANT NON-RESECTABLE
     Dosage: 20 mg, QMO
     Route: 030
     Dates: start: 20090316
  2. METHOTREXATE [Concomitant]

REACTIONS (7)
  - Death [Fatal]
  - Dyspnoea [Unknown]
  - Malignant neoplasm progression [Unknown]
  - Dyspepsia [Unknown]
  - Fatigue [Unknown]
  - Oedema peripheral [Unknown]
  - Back pain [Recovered/Resolved]
